FAERS Safety Report 21830543 (Version 1)
Quarter: 2023Q1

REPORT INFORMATION
  Report Type: Spontaneous
  Country: US (occurrence: None)
  Receive Date: 20230105
  Receipt Date: 20230105
  Transmission Date: 20230418
  Serious: Yes (Disabling, Other)
  Sender: FDA-Public Use
  Company Number: None

PATIENT
  Age: 30 Year
  Sex: Female
  Weight: 90 kg

DRUGS (1)
  1. KETOCONAZOLE [Suspect]
     Active Substance: KETOCONAZOLE
     Indication: Skin irritation
     Dosage: OTHER QUANTITY : 4 OUNCE(S);?FREQUENCY : AS NEEDED;?
     Route: 061

REACTIONS (5)
  - Feeling abnormal [None]
  - Paraesthesia [None]
  - Alopecia [None]
  - Drug ineffective [None]
  - Hypoaesthesia [None]

NARRATIVE: CASE EVENT DATE: 20220420
